FAERS Safety Report 21039341 (Version 7)
Quarter: 2022Q4

REPORT INFORMATION
  Report Type: Report from Study
  Country: US (occurrence: None)
  Receive Date: 20220704
  Receipt Date: 20221007
  Transmission Date: 20230113
  Serious: Yes (Hospitalization, Other)
  Sender: FDA-Public Use
  Company Number: US-ROCHE-3128064

PATIENT
  Age: 55 Year
  Sex: Female
  Weight: 105.7 kg

DRUGS (21)
  1. IPATASERTIB [Suspect]
     Active Substance: IPATASERTIB
     Indication: Non-small cell lung cancer metastatic
     Dosage: DATE OF MOST RECENT DOSE 26/JUN/2022.?ON 26/JUN/2022 6:30 PM START DATE OF MOST RECENT DOSE OF STUDY
     Route: 048
     Dates: start: 20220606
  2. ATEZOLIZUMAB [Suspect]
     Active Substance: ATEZOLIZUMAB
     Indication: Non-small cell lung cancer metastatic
     Dosage: START DATE OF MOST RECENT DOSE OF STUDY DRUG PRIOR TO AE/SAE: 07/JUN/2022 12:58 PM?END DATE OF MOST
     Route: 041
     Dates: start: 20220606
  3. HYDROCODONE BITARTRATE AND ACETAMINOPHEN [Concomitant]
     Active Substance: ACETAMINOPHEN\HYDROCODONE BITARTRATE
     Indication: Flank pain
     Route: 048
     Dates: start: 20220606
  4. LIPITOR [Concomitant]
     Active Substance: ATORVASTATIN CALCIUM
     Indication: Hyperlipidaemia
     Route: 048
     Dates: start: 20210714
  5. CALCIUM CARBONATE [Concomitant]
     Active Substance: CALCIUM CARBONATE
     Route: 048
     Dates: start: 20220501
  6. CYMBALTA [Concomitant]
     Active Substance: DULOXETINE HYDROCHLORIDE
     Indication: Anxiety
     Route: 048
     Dates: start: 20210402
  7. GLUCOSAMINE-CHONDROITIN DS [Concomitant]
     Indication: Arthralgia
     Route: 048
     Dates: start: 20220131
  8. SYNTHROID [Concomitant]
     Active Substance: LEVOTHYROXINE SODIUM
     Indication: Hypothyroidism
     Route: 048
     Dates: start: 20220131
  9. GLUCOPHAGE [Concomitant]
     Active Substance: METFORMIN HYDROCHLORIDE
     Indication: Diabetes mellitus
     Route: 048
     Dates: start: 20210616
  10. PROTONIX [Concomitant]
     Active Substance: PANTOPRAZOLE SODIUM
     Indication: Dyspepsia
     Route: 048
     Dates: start: 20211108
  11. ANTIVERT [Concomitant]
     Active Substance: MECLIZINE HYDROCHLORIDE
     Indication: Vertigo
     Route: 048
     Dates: start: 20220101
  12. PSEUDOEPHEDRINE [Concomitant]
     Active Substance: PSEUDOEPHEDRINE
     Indication: Nasal congestion
     Route: 048
     Dates: start: 20210301
  13. PSEUDOEPHEDRINE [Concomitant]
     Active Substance: PSEUDOEPHEDRINE
     Indication: Seasonal allergy
  14. IBUPROFEN [Concomitant]
     Active Substance: IBUPROFEN
     Indication: Flank pain
     Route: 048
     Dates: start: 20220526, end: 20220606
  15. IMODIUM [Concomitant]
     Active Substance: LOPERAMIDE HYDROCHLORIDE
     Indication: Diarrhoea
     Route: 048
     Dates: start: 20220606
  16. PREDNISONE [Concomitant]
     Active Substance: PREDNISONE
     Indication: Rash
     Route: 048
     Dates: start: 20220606, end: 20220609
  17. SODIUM CHLORIDE [Concomitant]
     Active Substance: SODIUM CHLORIDE
     Indication: Dehydration
     Route: 042
     Dates: start: 20220627, end: 20220630
  18. ROCEPHIN [Concomitant]
     Active Substance: CEFTRIAXONE SODIUM
     Indication: Urinary tract infection
     Route: 042
     Dates: start: 20220627, end: 20220627
  19. HEPARIN [Concomitant]
     Active Substance: HEPARIN SODIUM
     Route: 058
     Dates: start: 20220627, end: 20220629
  20. ZOFRAN [Concomitant]
     Active Substance: ONDANSETRON HYDROCHLORIDE
     Route: 048
     Dates: start: 20220613
  21. GEMCITABINE [Concomitant]
     Active Substance: GEMCITABINE
     Dosage: 1000 OTHER

REACTIONS (2)
  - Acute kidney injury [Recovered/Resolved]
  - Diarrhoea [Recovered/Resolved]

NARRATIVE: CASE EVENT DATE: 20220620
